FAERS Safety Report 18848512 (Version 1)
Quarter: 2021Q1

REPORT INFORMATION
  Report Type: Spontaneous
  Country: AT (occurrence: AT)
  Receive Date: 20210205
  Receipt Date: 20210205
  Transmission Date: 20210419
  Serious: Yes (Other)
  Sender: FDA-Public Use
  Company Number: NVSC2021AT023338

PATIENT
  Sex: Male

DRUGS (1)
  1. VOLTAREN [Suspect]
     Active Substance: DICLOFENAC SODIUM
     Indication: INFLUENZA
     Dosage: UNK
     Route: 065

REACTIONS (3)
  - Pancreatitis chronic [Unknown]
  - Product use in unapproved indication [Unknown]
  - Drug intolerance [Unknown]
